FAERS Safety Report 4488625-9 (Version None)
Quarter: 2004Q4

REPORT INFORMATION
  Report Type: 
  Country: None (occurrence: None)
  Receive Date: 20041026
  Receipt Date: 20041007
  Transmission Date: 20050328
  Serious: Yes (Other)
  Sender: FDA-Public Use
  Company Number: USA041080486

PATIENT
  Age: 62 Year
  Sex: Male

DRUGS (1)
  1. HUMULIN 70/30 [Suspect]
     Dosage: 1 U/1 DAY
     Dates: start: 20000101

REACTIONS (7)
  - LEG AMPUTATION [None]
  - MEDICATION ERROR [None]
  - PHARMACEUTICAL PRODUCT COMPLAINT [None]
  - PURULENCE [None]
  - RESPIRATORY TRACT CONGESTION [None]
  - SALIVARY HYPERSECRETION [None]
  - WEIGHT DECREASED [None]
